FAERS Safety Report 12810612 (Version 3)
Quarter: 2016Q4

REPORT INFORMATION
  Report Type: Spontaneous
  Country: GR (occurrence: GR)
  Receive Date: 20161005
  Receipt Date: 20161029
  Transmission Date: 20170207
  Serious: Yes (Death, Hospitalization)
  Sender: FDA-Public Use
  Company Number: GR-B.I. PHARMACEUTICALS,INC./RIDGEFIELD-2016-BI-063991

PATIENT
  Age: 64 Year
  Sex: Male
  Weight: 140 kg

DRUGS (4)
  1. PRADAXA [Suspect]
     Active Substance: DABIGATRAN ETEXILATE MESYLATE
     Indication: ATRIAL FIBRILLATION
     Route: 048
     Dates: start: 2010, end: 20160926
  2. PROPAFENONE HCL [Concomitant]
     Active Substance: PROPAFENONE HYDROCHLORIDE
     Indication: PRODUCT USED FOR UNKNOWN INDICATION
     Route: 065
  3. MOVATEC [Suspect]
     Active Substance: MELOXICAM
     Indication: ARTHRITIS
     Dosage: STRENGTH: 15MG
     Route: 048
     Dates: start: 20160926, end: 20160926
  4. LOPRESSOR [Concomitant]
     Active Substance: METOPROLOL TARTRATE
     Indication: HYPERTENSION
     Route: 065

REACTIONS (8)
  - Gastrointestinal haemorrhage [Fatal]
  - Gastric ulcer [Fatal]
  - Haematocrit decreased [Recovered/Resolved]
  - Arterial rupture [Fatal]
  - Drug interaction [Unknown]
  - Haematemesis [Recovered/Resolved]
  - Abdominal pain [Unknown]
  - Overdose [Recovered/Resolved]

NARRATIVE: CASE EVENT DATE: 20160926
